FAERS Safety Report 12598627 (Version 1)
Quarter: 2016Q3

REPORT INFORMATION
  Report Type: Spontaneous
  Country: DE (occurrence: DE)
  Receive Date: 20160726
  Receipt Date: 20160726
  Transmission Date: 20161109
  Serious: Yes (Other)
  Sender: FDA-Public Use
  Company Number: DE-MYLANLABS-2014M1000811

PATIENT

DRUGS (16)
  1. CARMEN                             /00740901/ [Concomitant]
     Indication: HYPERTENSION
     Dosage: 10 MG, QD
  2. SOTALOL. [Concomitant]
     Active Substance: SOTALOL
     Dosage: 160 MG, QD
  3. MARCUMAR [Concomitant]
     Active Substance: PHENPROCOUMON
     Dosage: 3 MG, QD
  4. CLOPIDOGREL [Suspect]
     Active Substance: CLOPIDOGREL BISULFATE
     Dosage: 75 MG, QD
     Dates: start: 20140130
  5. CLOPIDOGREL [Suspect]
     Active Substance: CLOPIDOGREL BISULFATE
     Indication: STENT PLACEMENT
  6. METFORMIN [Concomitant]
     Active Substance: METFORMIN HYDROCHLORIDE
     Dosage: 3000 MG, QD
  7. ATORVASTATIN [Suspect]
     Active Substance: ATORVASTATIN
     Dosage: 120 MG, UNK
  8. CLOPIDOGREL [Suspect]
     Active Substance: CLOPIDOGREL BISULFATE
     Dosage: 75 MG, QD
  9. SOTALOL. [Concomitant]
     Active Substance: SOTALOL
     Indication: ARRHYTHMIA
  10. EUTHYROX [Concomitant]
     Active Substance: LEVOTHYROXINE SODIUM
     Indication: THYROID OPERATION
  11. SOTALOL. [Concomitant]
     Active Substance: SOTALOL
     Dosage: 80 MG, BID
  12. ATORVASTATIN [Suspect]
     Active Substance: ATORVASTATIN
     Indication: LIPID METABOLISM DISORDER
     Dosage: 40 MG, QD
     Dates: start: 20140703
  13. CLOPIDOGREL [Suspect]
     Active Substance: CLOPIDOGREL BISULFATE
     Dosage: 11775 MG, UNK
  14. BENZBROMARON [Concomitant]
     Dosage: 100 MG, QD
  15. ATORVASTATIN [Suspect]
     Active Substance: ATORVASTATIN
     Dosage: 40 MG, QD
  16. TORASEMIDE [Concomitant]
     Active Substance: TORSEMIDE
     Indication: OEDEMA PERIPHERAL
     Dosage: 20 MG, QD

REACTIONS (6)
  - Abnormal loss of weight [Unknown]
  - Asthenia [Unknown]
  - Myalgia [Unknown]
  - Decreased appetite [Unknown]
  - Blood glucose increased [Unknown]
  - Intestinal obstruction [Unknown]

NARRATIVE: CASE EVENT DATE: 20140705
